FAERS Safety Report 10147397 (Version 2)
Quarter: 2014Q4

REPORT INFORMATION
  Report Type: Spontaneous
  Country: IT (occurrence: IT)
  Receive Date: 20140501
  Receipt Date: 20141024
  Transmission Date: 20150528
  Serious: Yes (Hospitalization)
  Sender: FDA-Public Use
  Company Number: PHHY2014IT050265

PATIENT
  Age: 65 Year
  Sex: Male

DRUGS (6)
  1. FLUCONAZOLE. [Suspect]
     Active Substance: FLUCONAZOLE
     Indication: ONYCHOMYCOSIS
     Dosage: 150 MG, QW
     Route: 048
     Dates: start: 20140216, end: 20140301
  2. CARDIOASPIRIN [Concomitant]
     Active Substance: ASPIRIN
     Dosage: 100 MG, UNK
  3. FULCROSUPRA [Concomitant]
     Active Substance: FENOFIBRATE
     Dosage: UNK UKN, UNK
     Dates: start: 20140301
  4. ALAPRIL [Concomitant]
     Dosage: 20 MG, UNK
  5. OMEPRAZEN [Concomitant]
     Active Substance: OMEPRAZOLE
     Dosage: 20 MG, UNK
     Route: 048
  6. BOSIX [Suspect]
     Active Substance: CIPROFLOXACIN HYDROCHLORIDE
     Indication: CYSTITIS
     Dosage: 500 MG, BID
     Route: 048
     Dates: start: 20140312, end: 20140318

REACTIONS (5)
  - Pruritus [Recovering/Resolving]
  - Penile erythema [Recovering/Resolving]
  - Rash generalised [Recovering/Resolving]
  - Oral mucosa erosion [Recovering/Resolving]
  - Eye irritation [Recovering/Resolving]

NARRATIVE: CASE EVENT DATE: 20140316
